FAERS Safety Report 25106497 (Version 1)
Quarter: 2025Q1

REPORT INFORMATION
  Report Type: Spontaneous
  Country: US (occurrence: None)
  Receive Date: 20250321
  Receipt Date: 20250321
  Transmission Date: 20250409
  Serious: Yes (unspecified)
  Sender: FDA-CTU
  Company Number: None

PATIENT
  Age: 66 Year
  Sex: Female
  Weight: 63 kg

DRUGS (2)
  1. EVENITY [Suspect]
     Active Substance: ROMOSOZUMAB-AQQG
     Indication: Osteoporosis
     Dates: start: 20241203, end: 20250320
  2. VITAMIN D 5000 IU [Concomitant]

REACTIONS (2)
  - Rash pruritic [None]
  - Eczema [None]

NARRATIVE: CASE EVENT DATE: 20250130
